FAERS Safety Report 11453563 (Version 1)
Quarter: 2015Q3

REPORT INFORMATION
  Report Type: Spontaneous
  Country: US (occurrence: US)
  Receive Date: 20150831
  Receipt Date: 20150831
  Transmission Date: 20151125
  Serious: No
  Sender: FDA-Public Use
  Company Number: US-ELI_LILLY_AND_COMPANY-US200912001044

PATIENT
  Age: 50 Year
  Sex: Female

DRUGS (3)
  1. XANAX /USA/ [Concomitant]
     Dosage: 0.25 MG, 2/D
  2. XANAX XR [Concomitant]
     Active Substance: ALPRAZOLAM
     Dosage: 0.5 MG, EACH EVENING
  3. CYMBALTA [Suspect]
     Active Substance: DULOXETINE HYDROCHLORIDE
     Dosage: 60 MG, UNK
     Route: 048

REACTIONS (2)
  - Blood potassium decreased [Unknown]
  - Alopecia [Unknown]

NARRATIVE: CASE EVENT DATE: 200909
